FAERS Safety Report 10445533 (Version 2)
Quarter: 2015Q1

REPORT INFORMATION
  Report Type: Spontaneous
  Country: US (occurrence: US)
  Receive Date: 20140910
  Receipt Date: 20150123
  Transmission Date: 20150720
  Serious: Yes (Death, Hospitalization, Other)
  Sender: FDA-Public Use
  Company Number: US-009507513-1409USA004455

PATIENT
  Sex: Female
  Weight: 87.53 kg

DRUGS (2)
  1. JANUMET [Suspect]
     Active Substance: METFORMIN HYDROCHLORIDE\SITAGLIPTIN PHOSPHATE
     Indication: TYPE 2 DIABETES MELLITUS
     Dosage: 50/1000MG DAILY
     Route: 048
     Dates: start: 20080121, end: 20130612
  2. BYETTA [Suspect]
     Active Substance: EXENATIDE
     Indication: TYPE 2 DIABETES MELLITUS
     Dosage: 10 MICROGRAM, QD
     Dates: start: 20080115, end: 20090429

REACTIONS (33)
  - Breast cancer [Unknown]
  - Malignant breast lump removal [Unknown]
  - Lung cancer metastatic [Unknown]
  - Atelectasis [Unknown]
  - Pleural effusion [Unknown]
  - Hypertension [Unknown]
  - Atrial fibrillation [Unknown]
  - Thyroid operation [Unknown]
  - Hypothyroidism [Unknown]
  - Disease complication [Fatal]
  - Lung neoplasm surgery [Unknown]
  - Lung cancer metastatic [Unknown]
  - Hyperlipidaemia [Unknown]
  - Depression [Unknown]
  - Treatment noncompliance [Unknown]
  - Thyroid cancer [Fatal]
  - Anxiety [Unknown]
  - Cardiac failure congestive [Unknown]
  - Oedema peripheral [Unknown]
  - Tachycardia [Unknown]
  - Thyroid neoplasm [Unknown]
  - Pulmonary mass [Unknown]
  - Orthopnoea [Unknown]
  - Brain tumour operation [Unknown]
  - Hypoglycaemia [Unknown]
  - Aortic valve replacement [Unknown]
  - Metastases to central nervous system [Unknown]
  - Pneumonia [Unknown]
  - Cellulitis [Unknown]
  - Osteomyelitis [Unknown]
  - Lung infiltration [Unknown]
  - Lymphoedema [Not Recovered/Not Resolved]
  - Anaemia of chronic disease [Unknown]

NARRATIVE: CASE EVENT DATE: 2008
